FAERS Safety Report 6241535-9 (Version None)
Quarter: 2009Q2

REPORT INFORMATION
  Report Type: 
  Country: None (occurrence: None)
  Receive Date: 20090623
  Receipt Date: 20041213
  Transmission Date: 20091009
  Serious: Yes (Hospitalization)
  Sender: FDA-Public Use
  Company Number: AT-ROCHE-367191

PATIENT
  Sex: Female
  Weight: 57 kg

DRUGS (23)
  1. DACLIZUMAB [Suspect]
     Dosage: BASELINE VISIT.
     Route: 042
     Dates: start: 20040106
  2. DACLIZUMAB [Suspect]
     Route: 042
     Dates: start: 20040121, end: 20040301
  3. MYCOPHENOLATE MOFETIL [Suspect]
     Route: 048
     Dates: start: 20040106
  4. MYCOPHENOLATE MOFETIL [Suspect]
     Route: 048
     Dates: start: 20040107
  5. MYCOPHENOLATE MOFETIL [Suspect]
     Route: 048
     Dates: start: 20040518
  6. TACROLIMUS [Suspect]
     Route: 048
     Dates: start: 20040106, end: 20040517
  7. TACROLIMUS [Suspect]
     Route: 048
     Dates: start: 20040518, end: 20050210
  8. TACROLIMUS [Suspect]
     Route: 048
     Dates: start: 20050211
  9. PREDNISOLONE [Suspect]
     Dosage: DRUG NAME: PREDNISOLON
     Route: 048
     Dates: start: 20040109
  10. METHYLPREDNISOLONE [Suspect]
     Route: 042
     Dates: start: 20040106
  11. METHYLPREDNISOLONE [Suspect]
     Route: 042
     Dates: start: 20040107
  12. METHYLPREDNISOLONE [Suspect]
     Route: 042
     Dates: start: 20040108
  13. FUROSEMID [Concomitant]
     Route: 048
     Dates: start: 20040401
  14. PANTOPRAZOLE SODIUM [Concomitant]
     Route: 048
     Dates: start: 20040106
  15. LASILACTONE [Concomitant]
     Route: 048
     Dates: start: 20041101
  16. LOVENOX [Concomitant]
     Route: 058
     Dates: start: 20041101, end: 20041124
  17. CARVEDILOL [Concomitant]
     Route: 048
     Dates: start: 20040108
  18. FLOXACILLIN SODIUM [Concomitant]
     Route: 042
     Dates: start: 20040106
  19. FLUVASTATIN [Concomitant]
     Route: 048
     Dates: start: 20040224, end: 20040301
  20. LEVOFLOXACIN [Concomitant]
     Route: 042
     Dates: start: 20040106
  21. METOPROLOL SUCCINATE [Concomitant]
     Route: 042
     Dates: start: 20040106
  22. PENICILLIN [Concomitant]
     Route: 042
     Dates: start: 20040106
  23. PIPERACILLIN SODIUM AND TAZOBACTAM SODIUM [Concomitant]
     Route: 042
     Dates: start: 20040106, end: 20040111

REACTIONS (2)
  - INCISIONAL HERNIA [None]
  - LEUKOPENIA [None]
